FAERS Safety Report 5100701-6 (Version None)
Quarter: 2006Q3

REPORT INFORMATION
  Report Type: 
  Country: None (occurrence: None)
  Receive Date: 20060906
  Receipt Date: 20060821
  Transmission Date: 20061208
  Serious: Yes (Death, Hospitalization)
  Sender: FDA-Public Use
  Company Number: L06-JPN-03375-01

PATIENT
  Age: 33 Year
  Sex: Female
  Weight: 90.2 kg

DRUGS (14)
  1. CARBAMAZEPINE [Suspect]
  2. NITRAZEPAM [Suspect]
  3. TRIHEXYPHENIDYL HCL [Suspect]
  4. PROMETHAZINE [Suspect]
  5. LEVOMEPROMAZINE [Suspect]
  6. HALOPERIDOL [Suspect]
  7. FLUVOXAMINE MALEATE [Suspect]
  8. ETIZOLAM [Suspect]
  9. LITHIUM CARBONATE [Suspect]
  10. BROMAZEPAM [Suspect]
  11. MECOBALAMIN [Suspect]
  12. OXYBUTYNIN CHLORIDE [Suspect]
  13. PROPIVERINE [Suspect]
  14. LIDOCAINE [Suspect]

REACTIONS (16)
  - ARRHYTHMIA [None]
  - CARDIAC FAILURE CONGESTIVE [None]
  - CARDIO-RESPIRATORY ARREST [None]
  - CEREBRAL DISORDER [None]
  - DRUG TOXICITY [None]
  - GENERAL PHYSICAL HEALTH DETERIORATION [None]
  - HEPATIC CONGESTION [None]
  - LOSS OF CONSCIOUSNESS [None]
  - MULTI-ORGAN DISORDER [None]
  - MULTIPLE DRUG OVERDOSE INTENTIONAL [None]
  - MYOCARDITIS [None]
  - OBESITY [None]
  - PULMONARY CONGESTION [None]
  - PULMONARY OEDEMA [None]
  - RENAL DISORDER [None]
  - SWELLING FACE [None]
